FAERS Safety Report 7280281-X (Version None)
Quarter: 2011Q1

REPORT INFORMATION
  Report Type: 
  Country: None (occurrence: None)
  Receive Date: 20110208
  Receipt Date: 20101207
  Transmission Date: 20110831
  Serious: Yes (Hospitalization, Other)
  Sender: FDA-Public Use
  Company Number: US-BAYER-201023973NA

PATIENT
  Sex: Female
  Weight: 64.943 kg

DRUGS (2)
  1. YAZ [Suspect]
     Indication: PRODUCT USED FOR UNKNOWN INDICATION
     Dosage: 1 DF, QD
     Route: 048
     Dates: start: 20090801, end: 20091101
  2. PREVACID [Concomitant]

REACTIONS (6)
  - CHOLECYSTITIS CHRONIC [None]
  - NAUSEA [None]
  - DIARRHOEA [None]
  - CHOLELITHIASIS [None]
  - ABDOMINAL PAIN UPPER [None]
  - VOMITING [None]
